FAERS Safety Report 10196216 (Version 1)
Quarter: 2014Q2

REPORT INFORMATION
  Report Type: Spontaneous
  Country: IT (occurrence: IT)
  Receive Date: 20140527
  Receipt Date: 20140527
  Transmission Date: 20141212
  Serious: Yes (Other)
  Sender: FDA-Public Use
  Company Number: IT-UCBSA-123070

PATIENT
  Age: 69 Year
  Sex: Female
  Weight: 68 kg

DRUGS (1)
  1. CIMZIA [Suspect]
     Indication: RHEUMATOID ARTHRITIS
     Dosage: 200MG INJECTABLE SOLUTION, 1ML 2 PREFILLED SYRINGE CYCLIC
     Route: 058
     Dates: start: 20110101, end: 20140218

REACTIONS (1)
  - Basal cell carcinoma [Unknown]
